FAERS Safety Report 9513050 (Version 1)
Quarter: 2013Q3

REPORT INFORMATION
  Report Type: Spontaneous
  Country: US (occurrence: US)
  Receive Date: 20130910
  Receipt Date: 20130910
  Transmission Date: 20140515
  Serious: No
  Sender: FDA-Public Use
  Company Number: US-PFIZER INC-2013257347

PATIENT
  Age: 53 Year
  Sex: Female
  Weight: 58.5 kg

DRUGS (1)
  1. GENOTROPIN [Suspect]
     Indication: GROWTH HORMONE DEFICIENCY
     Dosage: UNK, 1X/DAY
     Route: 058
     Dates: start: 2012

REACTIONS (1)
  - Fluid retention [Not Recovered/Not Resolved]
